FAERS Safety Report 7915293-3 (Version None)
Quarter: 2011Q4

REPORT INFORMATION
  Report Type: 
  Country: None (occurrence: None)
  Receive Date: 20111115
  Receipt Date: 20111016
  Transmission Date: 20120403
  Serious: No
  Sender: FDA-Public Use
  Company Number: US-BAYER-2011-101633

PATIENT

DRUGS (2)
  1. DECONGESTANT [CHLORPHENAM,PHENYLEPHR,PHENYLPROPANOLAM,PHENYLTOLOXA [Concomitant]
  2. ALEVE (CAPLET) [Suspect]
     Indication: HEADACHE
     Dosage: 2 DF, UNK
     Route: 048

REACTIONS (1)
  - HEADACHE [None]
